FAERS Safety Report 8280527-5 (Version None)
Quarter: 2012Q2

REPORT INFORMATION
  Report Type: 
  Country: None (occurrence: None)
  Receive Date: 20120412
  Receipt Date: 20120203
  Transmission Date: 20120825
  Serious: No
  Sender: FDA-Public Use
  Company Number: US-ASTRAZENECA-2011SE73938

PATIENT
  Age: 76 Year
  Sex: Female

DRUGS (2)
  1. NEXIUM [Suspect]
     Dosage: EVERY OTHER DAY
     Route: 048
  2. CRESTOR [Suspect]
     Route: 048

REACTIONS (3)
  - AGEUSIA [None]
  - INAPPROPRIATE SCHEDULE OF DRUG ADMINISTRATION [None]
  - FLATULENCE [None]
